FAERS Safety Report 4943999-7 (Version None)
Quarter: 2006Q1

REPORT INFORMATION
  Report Type: 
  Country: None (occurrence: None)
  Receive Date: 20060310
  Receipt Date: 20060303
  Transmission Date: 20060701
  Serious: Yes (Other)
  Sender: FDA-Public Use
  Company Number: A0596031A

PATIENT
  Age: 70 Year
  Sex: Male

DRUGS (9)
  1. AVODART [Suspect]
     Indication: BENIGN PROSTATIC HYPERPLASIA
     Dosage: .5 MG / PER DAY / ORAL
     Route: 048
     Dates: start: 20060225, end: 20060303
  2. TAMSULOSIN HCL [Concomitant]
  3. QUETIAPINE FUMARATE [Concomitant]
  4. SINEMET [Concomitant]
  5. CARBACHOL [Concomitant]
  6. THYROXINE SODIUM [Concomitant]
  7. DILTIAZEM HYDROCHLORIDE [Concomitant]
  8. MIDODRINE HCL [Concomitant]
  9. ASPIRIN [Concomitant]

REACTIONS (1)
  - HALLUCINATION [None]
